FAERS Safety Report 7294102-2 (Version None)
Quarter: 2011Q1

REPORT INFORMATION
  Report Type: 
  Country: None (occurrence: None)
  Receive Date: 20110215
  Receipt Date: 20110210
  Transmission Date: 20110831
  Serious: Yes (Hospitalization)
  Sender: FDA-Public Use
  Company Number: JP-PFIZER INC-2011025226

PATIENT
  Age: 74 Year
  Sex: Female
  Weight: 35 kg

DRUGS (11)
  1. HYPEN [Concomitant]
     Dosage: 1 DF, 2X/DAY
     Route: 048
  2. PURSENNID [Concomitant]
     Dosage: 3 DF, 1X/DAY
     Route: 048
  3. MAGNESIUM OXIDE [Concomitant]
     Dosage: 2 DF, 1X/DAY
     Route: 048
  4. TRIAZOLAM [Concomitant]
     Dosage: 2 DF, 1X/DAY
     Route: 048
  5. CRESTOR [Concomitant]
     Dosage: 1 DF, 1X/DAY
     Route: 048
  6. MUCOSTA [Concomitant]
     Dosage: 1 DF, 2X/DAY
     Route: 048
  7. DIAZEPAM [Concomitant]
     Dosage: 1 DF, 3X/DAY
     Route: 048
  8. LYRICA [Suspect]
     Dosage: 75 MG, 1X/DAY
     Route: 048
     Dates: start: 20110106, end: 20110106
  9. BENZALIN [Concomitant]
     Dosage: 1 DF, 1X/DAY
     Route: 048
  10. METHYCOBAL [Concomitant]
     Dosage: 1 DF, 3X/DAY
     Route: 048
  11. GLAKAY [Concomitant]
     Dosage: 1 DF, 3X/DAY
     Route: 048

REACTIONS (4)
  - ASTHENIA [None]
  - ALTERED STATE OF CONSCIOUSNESS [None]
  - BLOOD CREATINE PHOSPHOKINASE INCREASED [None]
  - BLOOD AMYLASE INCREASED [None]
